FAERS Safety Report 17829981 (Version 2)
Quarter: 2020Q2

REPORT INFORMATION
  Report Type: Report from Study
  Country: IL (occurrence: IL)
  Receive Date: 20200527
  Receipt Date: 20200605
  Transmission Date: 20200714
  Serious: Yes (Hospitalization, Other)
  Sender: FDA-Public Use
  Company Number: IL-IPSEN BIOPHARMACEUTICALS, INC.-2020-00658

PATIENT
  Age: 86 Year
  Sex: Female
  Weight: 65 kg

DRUGS (1)
  1. SOMATULINE [Suspect]
     Active Substance: LANREOTIDE ACETATE
     Indication: NEUROENDOCRINE TUMOUR
     Route: 058
     Dates: start: 20150722

REACTIONS (9)
  - Overweight [Unknown]
  - Atelectasis [Unknown]
  - Bile duct cancer [Unknown]
  - Metastases to liver [Unknown]
  - Cholelithiasis [Recovered/Resolved]
  - Product dose omission [Unknown]
  - Cholangitis [Unknown]
  - Pleural effusion [Unknown]
  - Carcinoid tumour of the pancreas [Unknown]

NARRATIVE: CASE EVENT DATE: 20200103
